FAERS Safety Report 4549504-1 (Version None)
Quarter: 2005Q1

REPORT INFORMATION
  Report Type: 
  Country: None (occurrence: None)
  Receive Date: 20050110
  Receipt Date: 20050110
  Transmission Date: 20050727
  Serious: Yes (Other)
  Sender: FDA-Public Use
  Company Number: None

PATIENT
  Age: 35 Year
  Sex: Female
  Weight: 61.2356 kg

DRUGS (2)
  1. EFFEXOR XR [Suspect]
     Indication: BIPOLAR DISORDER
     Dosage: 75 MG ONCE/DAY ORAL
     Route: 048
     Dates: start: 20011215, end: 20041231
  2. DEPAKOTE [Suspect]
     Indication: BIPOLAR DISORDER
     Dosage: 250 MG ONCE/DAT ORAL
     Route: 048
     Dates: start: 20011215, end: 20041231

REACTIONS (1)
  - VERTIGO [None]
